FAERS Safety Report 19440787 (Version 1)
Quarter: 2021Q2

REPORT INFORMATION
  Report Type: Spontaneous
  Country: NO (occurrence: NO)
  Receive Date: 20210621
  Receipt Date: 20210621
  Transmission Date: 20210717
  Serious: Yes (Life-Threatening, Hospitalization, Other)
  Sender: FDA-Public Use
  Company Number: NO-BRISTOL-MYERS SQUIBB COMPANY-BMS-2021-059955

PATIENT
  Age: 49 Year
  Sex: Male

DRUGS (4)
  1. PARACET [PARACETAMOL] [Concomitant]
     Active Substance: ACETAMINOPHEN
     Indication: PYREXIA
     Dosage: 1 GRAM
     Route: 048
     Dates: start: 20210518
  2. OPDIVO [Suspect]
     Active Substance: NIVOLUMAB
     Indication: METASTATIC MALIGNANT MELANOMA
     Dosage: 89 MILLIGRAM
     Route: 042
     Dates: start: 20210428, end: 20210520
  3. ZYRTEC [LEVOCABASTINE HYDROCHLORIDE] [Concomitant]
     Active Substance: LEVOCABASTINE HYDROCHLORIDE
     Indication: PRURITUS
     Dosage: 10 MILLIGRAM, QD
     Route: 048
     Dates: start: 20210511
  4. YERVOY [Suspect]
     Active Substance: IPILIMUMAB
     Indication: METASTATIC MALIGNANT MELANOMA
     Dosage: UNK, IN COMBINATION WITH NIVOLUMAB
     Route: 065

REACTIONS (1)
  - Anaphylactic shock [Recovered/Resolved]

NARRATIVE: CASE EVENT DATE: 20210520
